FAERS Safety Report 7360015-0 (Version None)
Quarter: 2011Q1

REPORT INFORMATION
  Report Type: 
  Country: None (occurrence: None)
  Receive Date: 20110317
  Receipt Date: 20110307
  Transmission Date: 20110831
  Serious: Yes (Hospitalization)
  Sender: FDA-Public Use
  Company Number: US-GENENTECH-315058

PATIENT

DRUGS (11)
  1. RITUXIMAB [Suspect]
     Indication: BURKITT'S LYMPHOMA
     Dosage: 375 MG/M2, UNK
     Route: 064
  2. CYTARABINE [Suspect]
     Dosage: UNK
     Route: 064
  3. IFOSFAMIDE [Suspect]
     Indication: BURKITT'S LYMPHOMA
     Dosage: UNK
     Route: 064
  4. VINCRISTINE [Suspect]
     Indication: BURKITT'S LYMPHOMA
     Dosage: 2 MG, UNK
     Route: 064
  5. FILGRASTIM [Suspect]
     Indication: FEBRILE NEUTROPENIA
     Dosage: UNK
     Route: 062
  6. DOXORUBICIN HCL [Suspect]
     Indication: BURKITT'S LYMPHOMA
     Dosage: 40 MG/M2, UNK
     Route: 064
  7. MESNA [Suspect]
     Indication: BURKITT'S LYMPHOMA
     Dosage: UNK
     Route: 064
  8. ETOPOSIDE [Suspect]
     Indication: BURKITT'S LYMPHOMA
     Dosage: UNK
     Route: 064
  9. CYCLOPHOSPHAMIDE [Suspect]
     Indication: BURKITT'S LYMPHOMA
     Dosage: 800 MG/M2, UNK
     Route: 064
  10. PREDNISONE TAB [Suspect]
     Indication: BURKITT'S LYMPHOMA
     Dosage: 100 MG, UNK
     Route: 064
  11. CYTARABINE [Suspect]
     Indication: BURKITT'S LYMPHOMA
     Dosage: 70 MG, UNK
     Route: 064

REACTIONS (2)
  - FOETAL GROWTH RESTRICTION [None]
  - STILLBIRTH [None]
